FAERS Safety Report 7636807-7 (Version None)
Quarter: 2011Q3

REPORT INFORMATION
  Report Type: 
  Country: None (occurrence: None)
  Receive Date: 20110726
  Receipt Date: 20110722
  Transmission Date: 20111222
  Serious: Yes (Hospitalization)
  Sender: FDA-Public Use
  Company Number: US-SANOFI-AVENTIS-2011SA047230

PATIENT
  Age: 80 Year
  Sex: Female

DRUGS (4)
  1. PLAVIX [Suspect]
     Route: 065
     Dates: end: 20110701
  2. ASPIRIN [Suspect]
     Route: 065
  3. AMLODIPINE BESYLATE [Concomitant]
  4. TOPROL-XL [Concomitant]

REACTIONS (2)
  - FALL [None]
  - HAEMORRHAGE [None]
